FAERS Safety Report 25095938 (Version 2)
Quarter: 2025Q2

REPORT INFORMATION
  Report Type: Spontaneous
  Country: FR (occurrence: FR)
  Receive Date: 20250319
  Receipt Date: 20250410
  Transmission Date: 20250716
  Serious: No
  Sender: CHATTEM
  Company Number: FR-OPELLA-2025OHG007203

PATIENT
  Age: 85 Year
  Sex: Female

DRUGS (5)
  1. ALUMINUM HYDROXIDE\MAGNESIUM HYDROXIDE [Suspect]
     Active Substance: ALUMINUM HYDROXIDE\MAGNESIUM HYDROXIDE
     Indication: Hyperchlorhydria
  2. PAROXETINE [Concomitant]
     Active Substance: PAROXETINE
     Indication: Product used for unknown indication
  3. IRBESARTAN [Concomitant]
     Active Substance: IRBESARTAN
     Indication: Product used for unknown indication
  4. CARBIMAZOLE [Concomitant]
     Active Substance: CARBIMAZOLE
     Indication: Product used for unknown indication
  5. BROMAZEPAM [Concomitant]
     Active Substance: BROMAZEPAM
     Indication: Product used for unknown indication

REACTIONS (6)
  - Constipation [Unknown]
  - Abdominal pain upper [Unknown]
  - Pruritus [Unknown]
  - Dry mouth [Unknown]
  - Nausea [Unknown]
  - Therapeutic product effect incomplete [Unknown]
